FAERS Safety Report 9865177 (Version 1)
Quarter: 2014Q1

REPORT INFORMATION
  Report Type: Spontaneous
  Country: US (occurrence: US)
  Receive Date: 20140203
  Receipt Date: 20140203
  Transmission Date: 20141002
  Serious: No
  Sender: FDA-Public Use
  Company Number: US-ALLERGAN-1304105US

PATIENT
  Age: 83 Year
  Sex: Female

DRUGS (3)
  1. RESTASIS [Suspect]
     Indication: PRODUCT USED FOR UNKNOWN INDICATION
     Dosage: UNK
     Route: 047
     Dates: start: 201301
  2. FINACEA CREAM [Concomitant]
     Indication: ROSACEA
  3. UNSPECIFIED CREAM FOR ROSACEA [Concomitant]
     Indication: ROSACEA

REACTIONS (2)
  - Wrong technique in drug usage process [Unknown]
  - Eye irritation [Not Recovered/Not Resolved]
